FAERS Safety Report 4452749-2 (Version None)
Quarter: 2004Q3

REPORT INFORMATION
  Report Type: 
  Country: None (occurrence: None)
  Receive Date: 20040813
  Receipt Date: 20040519
  Transmission Date: 20050211
  Serious: No
  Sender: FDA-Public Use
  Company Number: S04-USA-03360-01

PATIENT
  Age: 80 Year
  Sex: Male

DRUGS (2)
  1. NAMENDA [Suspect]
     Indication: DEMENTIA
     Dosage: 5 MG QD PO
     Route: 048
     Dates: start: 20040501, end: 20040501
  2. ARICEPT [Concomitant]

REACTIONS (2)
  - GAIT DISTURBANCE [None]
  - SOMNOLENCE [None]
